FAERS Safety Report 8523968-0 (Version None)
Quarter: 2012Q3

REPORT INFORMATION
  Report Type: 
  Country: None (occurrence: None)
  Receive Date: 20120720
  Receipt Date: 20120716
  Transmission Date: 20120928
  Serious: Yes (Death, Hospitalization, Other)
  Sender: FDA-Public Use
  Company Number: US-ELI_LILLY_AND_COMPANY-US201111001395

PATIENT
  Sex: Female
  Weight: 58.957 kg

DRUGS (14)
  1. GABAPENTIN [Concomitant]
  2. COMBIVENT [Concomitant]
  3. IBUPROFEN [Concomitant]
  4. FORTEO [Suspect]
     Indication: OSTEOPOROSIS
     Dosage: 20 UG, QD
     Route: 058
     Dates: start: 20110622
  5. CALCIUM [Concomitant]
  6. CARTIA XT [Concomitant]
  7. OMEPRAZOLE [Concomitant]
  8. TYLENOL (CAPLET) [Concomitant]
  9. FLOVENT [Concomitant]
  10. BETHANECHOL [Concomitant]
  11. SYNTHROID [Concomitant]
  12. MULTI-VITAMIN [Concomitant]
  13. IRON [Concomitant]
  14. VITAMIN D [Concomitant]

REACTIONS (6)
  - METABOLIC ACIDOSIS [None]
  - RENAL FAILURE [None]
  - DEATH [None]
  - HEARING IMPAIRED [None]
  - DEHYDRATION [None]
  - CYSTITIS [None]
